FAERS Safety Report 18396467 (Version 2)
Quarter: 2020Q4

REPORT INFORMATION
  Report Type: Spontaneous
  Country: JP (occurrence: JP)
  Receive Date: 20201019
  Receipt Date: 20201117
  Transmission Date: 20210114
  Serious: Yes (Hospitalization, Other)
  Sender: FDA-Public Use
  Company Number: JP-ORION CORPORATION ORION PHARMA-ENTC2020-0286

PATIENT
  Age: 68 Year
  Sex: Female

DRUGS (5)
  1. NOURIAST [Concomitant]
     Active Substance: ISTRADEFYLLINE
     Route: 065
  2. STALEVO [Suspect]
     Active Substance: CARBIDOPA\ENTACAPONE\LEVODOPA
     Dosage: L100 (1 TABLET CONTAINS 100 MG OF LEVODOPA (JP), 10.8 MG OF CARBIDOPA HYDRATE (JP) (CARBIDOPA 10 MG)
     Route: 048
  3. PARLODEL [Concomitant]
     Active Substance: BROMOCRIPTINE MESYLATE
     Route: 065
  4. STALEVO [Suspect]
     Active Substance: CARBIDOPA\ENTACAPONE\LEVODOPA
     Indication: PARKINSON^S DISEASE
     Dosage: L50 (1 TABLET CONTAINS 50 MG OF LEVODOPA (JP), 5.4 MG OF CARBIDOPA HYDRATE (JP) (CARBIDOPA 5 MG), AN
     Route: 048
  5. STALEVO [Suspect]
     Active Substance: CARBIDOPA\ENTACAPONE\LEVODOPA
     Route: 048

REACTIONS (3)
  - Hallucination [Recovered/Resolved]
  - Decubitus ulcer [Unknown]
  - Wrong technique in product usage process [Unknown]
